FAERS Safety Report 18015951 (Version 2)
Quarter: 2020Q4

REPORT INFORMATION
  Report Type: Spontaneous
  Country: CA (occurrence: CA)
  Receive Date: 20200713
  Receipt Date: 20201019
  Transmission Date: 20210113
  Serious: Yes (Life-Threatening, Hospitalization, Other)
  Sender: FDA-Public Use
  Company Number: CA-PFIZER INC-2020261347

PATIENT
  Age: 10 Year
  Sex: Male
  Weight: 35 kg

DRUGS (4)
  1. CEFOTAXIME [Suspect]
     Active Substance: CEFOTAXIME SODIUM
     Dosage: 1750 MG, 4X/DAY
     Route: 042
     Dates: start: 20190108, end: 20190109
  2. ACETAMINOPHEN. [Concomitant]
     Active Substance: ACETAMINOPHEN
     Dosage: 500 MG, EVERY 4 HOURS AS NEEDED
     Route: 048
     Dates: start: 20190107
  3. AMOXICILLIN. [Suspect]
     Active Substance: AMOXICILLIN
     Indication: PNEUMONIA MYCOPLASMAL
     Dosage: 1 G, 3X/DAY
     Route: 048
     Dates: start: 20190107, end: 20190108
  4. IBUPROFEN. [Suspect]
     Active Substance: IBUPROFEN
     Dosage: 360 MG
     Route: 048
     Dates: start: 20190107, end: 20190107

REACTIONS (13)
  - Polymerase chain reaction [Recovered/Resolved]
  - Rash [Recovered/Resolved]
  - Off label use [Unknown]
  - Urticaria [Recovered/Resolved]
  - Cough [Unknown]
  - Oedema mucosal [Recovered/Resolved]
  - Mycoplasma test positive [Recovered/Resolved]
  - Pyrexia [Recovered/Resolved]
  - Pruritus [Recovered/Resolved]
  - Anaphylactic shock [Recovered/Resolved]
  - Chills [Recovered/Resolved]
  - Diarrhoea [Recovered/Resolved]
  - Product use issue [Unknown]

NARRATIVE: CASE EVENT DATE: 201901
